FAERS Safety Report 5022366-4 (Version None)
Quarter: 2006Q2

REPORT INFORMATION
  Report Type: 
  Country: None (occurrence: None)
  Receive Date: 20060605
  Receipt Date: 20060526
  Transmission Date: 20061013
  Serious: Yes (Hospitalization)
  Sender: FDA-Public Use
  Company Number: 200610329BYL

PATIENT
  Age: 65 Year
  Sex: Male

DRUGS (4)
  1. NIFEDIPINE [Suspect]
     Indication: ESSENTIAL HYPERTENSION
     Dosage: 20 MG, QD
     Dates: start: 20051029, end: 20051118
  2. DIOVAN [Concomitant]
  3. PAMILCON [Concomitant]
  4. LASIX [Concomitant]

REACTIONS (1)
  - RHABDOMYOLYSIS [None]
